FAERS Safety Report 10592270 (Version 1)
Quarter: 2014Q4

REPORT INFORMATION
  Report Type: Spontaneous
  Country: GB (occurrence: None)
  Receive Date: 20141117
  Receipt Date: 20141117
  Transmission Date: 20150529
  Serious: Yes (Other)
  Sender: FDA-Public Use
  Company Number: IMP_08138_2014

PATIENT
  Age: 71 Year
  Sex: Male

DRUGS (5)
  1. METFORMIN [Suspect]
     Active Substance: METFORMIN HYDROCHLORIDE
     Indication: TYPE 2 DIABETES MELLITUS
     Dosage: DF
  2. RAMIPRIL. [Concomitant]
     Active Substance: RAMIPRIL
  3. SIMVASTATIN. [Suspect]
     Active Substance: SIMVASTATIN
     Indication: HYPERCHOLESTEROLAEMIA
     Dosage: DF
  4. ULTRAVIOLET-B TREATMENT [Suspect]
     Active Substance: UNSPECIFIED INGREDIENT
     Dosage: DF
  5. ASPIRIN. [Concomitant]
     Active Substance: ASPIRIN

REACTIONS (1)
  - Actinic elastosis [None]
